FAERS Safety Report 6630897-6 (Version None)
Quarter: 2010Q1

REPORT INFORMATION
  Report Type: 
  Country: None (occurrence: None)
  Receive Date: 20100311
  Receipt Date: 20090831
  Transmission Date: 20100710
  Serious: Yes (Death, Hospitalization, Other)
  Sender: FDA-Public Use
  Company Number: PT-SANOFI-AVENTIS-A01200909133

PATIENT
  Age: 66 Year
  Sex: Male

DRUGS (11)
  1. METFORMIN HYDROCHLORIDE [Suspect]
     Dosage: DOSE TEXT: UNK
  2. GLIBENCLAMIDE [Suspect]
     Dosage: DOSE TEXT: UNK
  3. ALLOPURINOL [Suspect]
     Dosage: DOSE TEXT: UNK
  4. GANCICLOVIR [Suspect]
     Dosage: DOSE TEXT: 5 MG/KG
  5. ASPIRIN [Concomitant]
     Dosage: DOSE TEXT: UNK
  6. OMEPRAZOLE [Concomitant]
     Dosage: DOSE TEXT: UNK
  7. FUROSEMIDE [Concomitant]
     Dosage: DOSE TEXT: UNK
  8. RAMIPRIL [Concomitant]
     Dosage: DOSE TEXT: UNK
  9. SIMVASTATIN [Concomitant]
     Dosage: DOSE TEXT: UNK
  10. METRONIDAZOLE [Concomitant]
     Dosage: DOSE TEXT: UNK
  11. CIPROFLOXACIN [Concomitant]
     Dosage: DOSE TEXT: UNK

REACTIONS (7)
  - CANDIDIASIS [None]
  - CYTOMEGALOVIRUS ENTERITIS [None]
  - DRUG INEFFECTIVE [None]
  - OPPORTUNISTIC INFECTION [None]
  - RENAL FAILURE [None]
  - RESPIRATORY FAILURE [None]
  - STAPHYLOCOCCAL BACTERAEMIA [None]
